FAERS Safety Report 9346124 (Version 2)
Quarter: 2013Q2

REPORT INFORMATION
  Report Type: Spontaneous
  Country: HU (occurrence: HU)
  Receive Date: 20130613
  Receipt Date: 20130625
  Transmission Date: 20140414
  Serious: Yes (Hospitalization, Other)
  Sender: FDA-Public Use
  Company Number: HU-ACTELION-A-CH2013-84154

PATIENT
  Age: 45 Year
  Sex: Female
  Weight: 49 kg

DRUGS (8)
  1. TRACLEER [Suspect]
     Indication: PULMONARY ARTERIAL HYPERTENSION
     Dosage: 62.5 MG, BID
     Route: 048
     Dates: start: 20110721, end: 20130516
  2. METHYLPREDNISOLON [Concomitant]
     Dosage: 8 MG, UNK
     Dates: start: 2003
  3. PANTOPRAZOL [Concomitant]
     Dosage: 40 MG, UNK
  4. AZATHIOPRIN [Concomitant]
     Dosage: 5 MG, UNK
     Dates: start: 2003
  5. SPIRONOLACTON [Concomitant]
     Dosage: 25 MG, BID
     Dates: start: 2011
  6. FUROSEMIDUM [Concomitant]
     Dosage: 40 MG, UNK
     Dates: start: 2011
  7. VITAMIN D3 [Concomitant]
     Dosage: 1000 IU, UNK
     Dates: start: 2011
  8. DIGITOXIN [Concomitant]
     Dosage: 0.007 MG, OD
     Dates: start: 2011

REACTIONS (8)
  - Hepatic enzyme increased [Recovered/Resolved with Sequelae]
  - Jaundice [Recovered/Resolved with Sequelae]
  - Aspartate aminotransferase increased [Recovered/Resolved with Sequelae]
  - Alanine aminotransferase increased [Recovered/Resolved with Sequelae]
  - Blood bilirubin increased [Recovered/Resolved with Sequelae]
  - Bilirubin conjugated increased [Recovered/Resolved with Sequelae]
  - Blood alkaline phosphatase increased [Recovered/Resolved with Sequelae]
  - Systemic lupus erythematosus [Unknown]
